FAERS Safety Report 7129029-X (Version None)
Quarter: 2010Q4

REPORT INFORMATION
  Report Type: 
  Country: None (occurrence: None)
  Receive Date: 20101130
  Receipt Date: 20080311
  Transmission Date: 20110411
  Serious: Yes (Other)
  Sender: FDA-Public Use
  Company Number: AU-ROCHE-742470

PATIENT

DRUGS (2)
  1. HERCEPTIN [Suspect]
     Route: 065
  2. HERCEPTIN [Suspect]
     Route: 065

REACTIONS (1)
  - CARDIAC DISORDER [None]
